FAERS Safety Report 10786551 (Version 3)
Quarter: 2015Q2

REPORT INFORMATION
  Report Type: Report from Study
  Country: US (occurrence: US)
  Receive Date: 20150211
  Receipt Date: 20150409
  Transmission Date: 20150821
  Serious: Yes (Other)
  Sender: FDA-Public Use
  Company Number: US-VERTEX PHARMACEUTICALS-2015-000403

PATIENT
  Age: 14 Year
  Sex: Male

DRUGS (1)
  1. KALYDECO [Suspect]
     Active Substance: IVACAFTOR
     Indication: CYSTIC FIBROSIS
     Dosage: 150 MG, BID
     Route: 048
     Dates: start: 20130209, end: 20150204

REACTIONS (15)
  - Drug ineffective [Unknown]
  - Dehydration [Unknown]
  - Asthenia [Unknown]
  - Decreased appetite [Unknown]
  - Skin odour abnormal [Unknown]
  - Fatigue [Unknown]
  - Malaise [Unknown]
  - Incorrect dose administered [Unknown]
  - Nausea [Unknown]
  - Abdominal pain [Unknown]
  - Chromaturia [Unknown]
  - Headache [Unknown]
  - Diarrhoea [Unknown]
  - Arthralgia [Unknown]
  - Gastrointestinal disorder [Unknown]

NARRATIVE: CASE EVENT DATE: 20150226
